FAERS Safety Report 4996821-7 (Version None)
Quarter: 2006Q2

REPORT INFORMATION
  Report Type: 
  Country: None (occurrence: None)
  Receive Date: 20060509
  Receipt Date: 20060504
  Transmission Date: 20061013
  Serious: Yes (Hospitalization, Disabling)
  Sender: FDA-Public Use
  Company Number: US-MERCK-0605USA01074

PATIENT
  Age: 61 Year
  Sex: Female
  Weight: 70 kg

DRUGS (7)
  1. VIOXX [Suspect]
     Indication: ARTHRALGIA
     Route: 048
     Dates: start: 20010501, end: 20031101
  2. FLONASE [Concomitant]
     Route: 065
  3. SYNTHROID [Concomitant]
     Route: 065
  4. ZYRTEC [Concomitant]
     Route: 065
  5. ZOLOFT [Concomitant]
     Route: 065
  6. ZANTAC [Concomitant]
     Route: 065
  7. ALBUTEROL [Concomitant]
     Route: 065

REACTIONS (1)
  - MYOCARDIAL INFARCTION [None]
